FAERS Safety Report 6876041-1 (Version None)
Quarter: 2010Q3

REPORT INFORMATION
  Report Type: 
  Country: None (occurrence: None)
  Receive Date: 20100727
  Receipt Date: 20100716
  Transmission Date: 20110219
  Serious: Yes (Other)
  Sender: FDA-Public Use
  Company Number: US-JNJCH-2010016852

PATIENT
  Age: 61 Year
  Sex: Female

DRUGS (6)
  1. BENADRYL [Suspect]
     Indication: HYPERSENSITIVITY
     Dosage: TEXT:UNKNOWN
     Route: 048
  2. CORGARD [Concomitant]
     Indication: HYPERTENSION
     Dosage: TEXT:ONE 80 MG/40 MG 2X DAY
     Route: 065
  3. CORGARD [Concomitant]
     Indication: CARDIAC FIBRILLATION
  4. LANOXIN [Concomitant]
     Indication: CARDIAC DISORDER
     Dosage: TEXT:ONE 0.125 MG DAILY
     Route: 065
  5. CHOLESTEROL- AND TRIGLYCERIDE REDUCERS [Concomitant]
     Indication: BLOOD TRIGLYCERIDES
     Dosage: TEXT:ONE 1GRAM 2X A DAY
     Route: 065
  6. OPHTHALMOLOGICALS [Concomitant]
     Indication: PRODUCT USED FOR UNKNOWN INDICATION
     Dosage: TEXT:UNKNOWN
     Route: 047

REACTIONS (1)
  - ATRIAL FIBRILLATION [None]
